FAERS Safety Report 7134120-8 (Version None)
Quarter: 2010Q4

REPORT INFORMATION
  Report Type: 
  Country: None (occurrence: None)
  Receive Date: 20101203
  Receipt Date: 20101124
  Transmission Date: 20110411
  Serious: Yes (Other)
  Sender: FDA-Public Use
  Company Number: NL-US-EMD SERONO, INC.-7025558

PATIENT
  Sex: Female
  Weight: 82 kg

DRUGS (4)
  1. REBIF [Suspect]
     Indication: MULTIPLE SCLEROSIS
     Route: 058
     Dates: start: 20101026, end: 20101107
  2. REBIF [Suspect]
     Route: 058
     Dates: start: 20101109, end: 20101121
  3. REBIF [Suspect]
     Route: 058
     Dates: start: 20101124
  4. DIANE [Concomitant]
     Indication: CONTRACEPTION

REACTIONS (8)
  - DECREASED APPETITE [None]
  - INFLUENZA LIKE ILLNESS [None]
  - INJECTION SITE ERYTHEMA [None]
  - LUNG INFECTION [None]
  - MYALGIA [None]
  - NAUSEA [None]
  - PALPITATIONS [None]
  - SENSATION OF HEAVINESS [None]
